FAERS Safety Report 9370986 (Version 6)
Quarter: 2014Q3

REPORT INFORMATION
  Report Type: Report from Study
  Country: HU (occurrence: HU)
  Receive Date: 20130627
  Receipt Date: 20140724
  Transmission Date: 20150326
  Serious: Yes (Hospitalization)
  Sender: FDA-Public Use
  Company Number: HU-ROCHE-1228279

PATIENT
  Sex: Male

DRUGS (4)
  1. CONTRAMAL [Concomitant]
     Active Substance: TRAMADOL HYDROCHLORIDE
     Route: 065
  2. XELODA [Suspect]
     Active Substance: CAPECITABINE
     Indication: COLORECTAL CANCER
     Route: 048
     Dates: start: 20130510, end: 20130623
  3. CONTRAMAL [Concomitant]
     Active Substance: TRAMADOL HYDROCHLORIDE
     Route: 065
  4. XELODA [Suspect]
     Active Substance: CAPECITABINE
     Route: 048
     Dates: start: 2013

REACTIONS (14)
  - Proctalgia [Recovered/Resolved]
  - Dermatitis [Unknown]
  - Diarrhoea [Unknown]
  - Pain in extremity [Unknown]
  - Palmar-plantar erythrodysaesthesia syndrome [Unknown]
  - Dysuria [Unknown]
  - Decreased appetite [Unknown]
  - Urinary incontinence [Unknown]
  - Gastrointestinal inflammation [Unknown]
  - Pyrexia [Unknown]
  - Abdominal pain lower [Recovered/Resolved]
  - Arthropod bite [Unknown]
  - Asthenia [Recovering/Resolving]
  - Rectal discharge [Unknown]
